FAERS Safety Report 24749387 (Version 1)
Quarter: 2024Q4

REPORT INFORMATION
  Report Type: Spontaneous
  Country: US (occurrence: None)
  Receive Date: 20241218
  Receipt Date: 20241218
  Transmission Date: 20250115
  Serious: Yes (Disabling, Other)
  Sender: Public
  Company Number: None

PATIENT
  Age: 68 Year
  Sex: Female
  Weight: 72 kg

DRUGS (9)
  1. METHIMAZOLE [Suspect]
     Active Substance: METHIMAZOLE
     Indication: Hyperthyroidism
  2. TYLENOL [Concomitant]
     Active Substance: ACETAMINOPHEN
  3. LAMOTRIGINE [Concomitant]
     Active Substance: LAMOTRIGINE
  4. PRAMIPEXOLE [Concomitant]
     Active Substance: PRAMIPEXOLE\PRAMIPEXOLE DIHYDROCHLORIDE
  5. ROSUVASTATIN [Concomitant]
     Active Substance: ROSUVASTATIN
  6. ALBUTEROL [Concomitant]
     Active Substance: ALBUTEROL
  7. ADVAIR HFA [Concomitant]
     Active Substance: FLUTICASONE PROPIONATE\SALMETEROL XINAFOATE
  8. Vitamin D, [Concomitant]
  9. IBUPROFEN [Concomitant]
     Active Substance: IBUPROFEN

REACTIONS (13)
  - Pyrexia [None]
  - Nausea [None]
  - Vomiting [None]
  - Therapy interrupted [None]
  - Balance disorder [None]
  - Fall [None]
  - Tremor [None]
  - Coordination abnormal [None]
  - Gait disturbance [None]
  - White blood cell count decreased [None]
  - Platelet count decreased [None]
  - Abdominal lymphadenopathy [None]
  - Weight decreased [None]

NARRATIVE: CASE EVENT DATE: 20241124
